FAERS Safety Report 9032984 (Version 1)
Quarter: 2013Q1

REPORT INFORMATION
  Report Type: Spontaneous
  Country: IE (occurrence: IE)
  Receive Date: 20130128
  Receipt Date: 20130128
  Transmission Date: 20140127
  Serious: Yes (Hospitalization, Other)
  Sender: FDA-Public Use
  Company Number: IE-JNJFOC-20121201336

PATIENT
  Sex: Male

DRUGS (5)
  1. XARELTO [Suspect]
     Indication: THROMBOSIS PROPHYLAXIS
     Dosage: FOR 9 DAYS
     Route: 048
  2. XARELTO [Suspect]
     Indication: THROMBOSIS PROPHYLAXIS
     Dosage: FOR 2 DAYS
     Route: 048
  3. XARELTO [Suspect]
     Indication: KNEE ARTHROPLASTY
     Dosage: FOR 2 DAYS
     Route: 048
  4. XARELTO [Suspect]
     Indication: KNEE ARTHROPLASTY
     Dosage: FOR 9 DAYS
     Route: 048
  5. CLEXANE [Concomitant]
     Route: 065

REACTIONS (4)
  - Pulmonary embolism [Unknown]
  - Malaise [Unknown]
  - Pallor [Unknown]
  - Drug ineffective [Unknown]
